FAERS Safety Report 8726052 (Version 2)
Quarter: 2012Q4

REPORT INFORMATION
  Report Type: Report from Study
  Country: AU (occurrence: AU)
  Receive Date: 20120816
  Receipt Date: 20120906
  Transmission Date: 20130627
  Serious: Yes (Death, Life-Threatening, Hospitalization)
  Sender: FDA-Public Use
  Company Number: AU-JNJFOC-20120610977

PATIENT
  Age: 79 Year
  Sex: Male
  Weight: 86.2 kg

DRUGS (10)
  1. ABIRATERONE ACETATE [Suspect]
     Route: 048
  2. ABIRATERONE ACETATE [Suspect]
     Indication: PROSTATE CANCER METASTATIC
     Route: 048
     Dates: start: 20120131, end: 20120618
  3. PREDNISONE [Suspect]
     Indication: PROSTATE CANCER METASTATIC
     Route: 048
     Dates: start: 20120131, end: 20120618
  4. ZOLADEX [Concomitant]
     Indication: HORMONE THERAPY
     Route: 065
     Dates: start: 200703
  5. CYPROTERONE [Concomitant]
     Indication: HORMONE THERAPY
     Route: 065
     Dates: start: 20100819
  6. DOXEPIN [Concomitant]
     Indication: DEPRESSION
     Route: 065
     Dates: start: 2006
  7. ATENOLOL [Concomitant]
     Indication: HYPERTENSION
     Route: 065
     Dates: start: 2006
  8. TAMSULOSIN [Concomitant]
     Indication: BENIGN PROSTATIC HYPERPLASIA
     Route: 065
     Dates: start: 200703
  9. PARACETAMOL [Concomitant]
     Indication: PAIN
     Route: 065
     Dates: start: 2006
  10. PANTOPRAZOLE [Concomitant]
     Indication: GASTROOESOPHAGEAL REFLUX DISEASE
     Route: 065
     Dates: start: 2007

REACTIONS (3)
  - Diarrhoea [Unknown]
  - Sepsis [Fatal]
  - Multi-organ failure [Fatal]
